FAERS Safety Report 22967480 (Version 8)
Quarter: 2024Q1

REPORT INFORMATION
  Report Type: Spontaneous
  Country: US (occurrence: US)
  Receive Date: 20230921
  Receipt Date: 20240221
  Transmission Date: 20240410
  Serious: No
  Sender: FDA-Public Use
  Company Number: US-PFIZER INC-PV202300155976

PATIENT
  Age: 71 Year
  Sex: Female

DRUGS (1)
  1. TIKOSYN [Suspect]
     Active Substance: DOFETILIDE
     Indication: Atrial fibrillation
     Dosage: 250 UG (1 CAPSULE), 2X/DAY
     Route: 048
     Dates: start: 20230306

REACTIONS (2)
  - COVID-19 [Unknown]
  - Malaise [Unknown]
